FAERS Safety Report 9730049 (Version 1)
Quarter: 2013Q4

REPORT INFORMATION
  Report Type: Spontaneous
  Country: US (occurrence: US)
  Receive Date: 20131204
  Receipt Date: 20131204
  Transmission Date: 20140711
  Serious: No
  Sender: FDA-Public Use
  Company Number: US-PFIZER INC-2013340873

PATIENT
  Age: 17 Year
  Sex: Male

DRUGS (1)
  1. XYNTHA [Suspect]
     Dosage: 22,500 MONTHLY
     Dates: start: 20130906

REACTIONS (1)
  - Fatigue [Unknown]
